FAERS Safety Report 11158973 (Version 3)
Quarter: 2017Q2

REPORT INFORMATION
  Report Type: Spontaneous
  Country: US (occurrence: US)
  Receive Date: 20150603
  Receipt Date: 20170411
  Transmission Date: 20170829
  Serious: No
  Sender: FDA-Public Use
  Company Number: US-TEVA-508619USA

PATIENT
  Sex: Female

DRUGS (6)
  1. NAPROXEN. [Concomitant]
     Active Substance: NAPROXEN
     Dosage: 1100 MILLIGRAM DAILY; AS NEEDED
     Route: 065
  2. LYRICA [Concomitant]
     Active Substance: PREGABALIN
     Dosage: 400 MILLIGRAM DAILY; ONE TWICE A DAY AS NEEDED
     Route: 065
  3. FENTANYL CITRATE. [Suspect]
     Active Substance: FENTANYL CITRATE
     Indication: SYRINGOMYELIA
     Dosage: 6400 MICROGRAM DAILY; 1 LOZENGE 8 TIMES A DAY
     Route: 048
     Dates: start: 20140825
  4. FENTANYL CITRATE. [Suspect]
     Active Substance: FENTANYL CITRATE
     Dosage: ONE EVERY 3 TO 4 HOURS FOR TOTAL OF 8 PER DAY
     Route: 048
  5. FENTANYL. [Concomitant]
     Active Substance: FENTANYL
  6. DURAGESIC [Concomitant]
     Active Substance: FENTANYL
     Dosage: PER HOUR, ONE PATCH EVERY 48 HOURS
     Route: 062

REACTIONS (3)
  - Drug ineffective [Unknown]
  - Product use in unapproved indication [Unknown]
  - Drug effect incomplete [Unknown]
